FAERS Safety Report 19454398 (Version 1)
Quarter: 2021Q2

REPORT INFORMATION
  Report Type: Spontaneous
  Country: AU (occurrence: AU)
  Receive Date: 20210623
  Receipt Date: 20210623
  Transmission Date: 20210717
  Serious: Yes (Other)
  Sender: FDA-Public Use
  Company Number: AU-SAMSUNG BIOEPIS-SB-2021-14913

PATIENT
  Age: 20 Year
  Sex: Female

DRUGS (2)
  1. INFLIXIMAB [Suspect]
     Active Substance: INFLIXIMAB
     Indication: AUTOINFLAMMATORY DISEASE
     Dosage: UNKNOWN
     Route: 065
  2. PREDNISOLONE. [Suspect]
     Active Substance: PREDNISOLONE
     Indication: AUTOINFLAMMATORY DISEASE
     Dosage: UNKNOWN
     Route: 065

REACTIONS (4)
  - Maternal exposure during pregnancy [Unknown]
  - Premature labour [Unknown]
  - Gestational diabetes [Unknown]
  - Off label use [Unknown]
